FAERS Safety Report 24453843 (Version 2)
Quarter: 2024Q4

REPORT INFORMATION
  Report Type: Report from Study
  Country: US (occurrence: US)
  Receive Date: 20241017
  Receipt Date: 20241018
  Transmission Date: 20250114
  Serious: No
  Sender: ROCHE
  Company Number: US-ROCHE-3455486

PATIENT
  Age: 35 Year
  Sex: Female

DRUGS (2)
  1. RITUXAN [Suspect]
     Active Substance: RITUXIMAB
     Indication: Rheumatoid arthritis
     Dosage: DAY 1 AND DAY 15, REPEAT CYCLE EVERY 6 MONTHS.
     Route: 042
     Dates: start: 2020
  2. RITUXAN [Suspect]
     Active Substance: RITUXIMAB
     Indication: Nephritic syndrome

REACTIONS (1)
  - Maternal exposure before pregnancy [Unknown]
